FAERS Safety Report 7550104-X (Version None)
Quarter: 2011Q2

REPORT INFORMATION
  Report Type: 
  Country: None (occurrence: None)
  Receive Date: 20110615
  Receipt Date: 20110610
  Transmission Date: 20111010
  Serious: Yes (Other)
  Sender: FDA-Public Use
  Company Number: CA-PFIZER INC-2011127360

PATIENT
  Sex: Female

DRUGS (4)
  1. IBUPROFEN [Suspect]
     Indication: BACK PAIN
     Dosage: 2 TABLETS AT ONCE
     Dates: start: 20110603, end: 20110603
  2. SYMBICORT [Concomitant]
     Dosage: UNK
  3. ADVIL LIQUI-GELS [Suspect]
     Dosage: UNK
  4. LEVOTHYROXINE SODIUM [Concomitant]
     Dosage: UNK

REACTIONS (3)
  - RASH [None]
  - PARAESTHESIA [None]
  - SWELLING FACE [None]
